FAERS Safety Report 24458176 (Version 1)
Quarter: 2024Q4

REPORT INFORMATION
  Report Type: Spontaneous
  Country: CN (occurrence: CN)
  Receive Date: 20241018
  Receipt Date: 20241018
  Transmission Date: 20250115
  Serious: Yes (Hospitalization)
  Sender: SANOFI AVENTIS
  Company Number: CN-SA-2024SA296195

PATIENT
  Age: 36 Year
  Sex: Male
  Weight: 47 kg

DRUGS (5)
  1. OXALIPLATIN [Suspect]
     Active Substance: OXALIPLATIN
     Indication: Gastric cancer
     Dosage: 0.2 G, 1X
     Route: 041
     Dates: start: 20240927, end: 20240927
  2. FLUOROURACIL [Suspect]
     Active Substance: FLUOROURACIL
     Indication: Gastric cancer
     Dosage: 0.46 G, 1X
     Route: 041
     Dates: start: 20240927, end: 20240927
  3. TISLELIZUMAB [Suspect]
     Active Substance: TISLELIZUMAB
     Indication: Gastric cancer
     Dosage: 0.2 G, 1X
     Route: 041
     Dates: start: 20240927, end: 20240927
  4. DEXTROSE [Concomitant]
     Active Substance: DEXTROSE MONOHYDRATE
     Indication: Vehicle solution use
     Dosage: 1 DF, 1X
     Route: 041
     Dates: start: 20240927, end: 20240927
  5. SODIUM CHLORIDE [Concomitant]
     Active Substance: SODIUM CHLORIDE
     Indication: Vehicle solution use
     Dosage: 1 DF, 1X
     Route: 041
     Dates: start: 20240927, end: 20240927

REACTIONS (2)
  - Discoloured vomit [Recovering/Resolving]
  - Nausea [Recovering/Resolving]

NARRATIVE: CASE EVENT DATE: 20240928
